FAERS Safety Report 6836737-4 (Version None)
Quarter: 2010Q3

REPORT INFORMATION
  Report Type: 
  Country: None (occurrence: None)
  Receive Date: 20100708
  Receipt Date: 20100701
  Transmission Date: 20110219
  Serious: Yes (Hospitalization)
  Sender: FDA-Public Use
  Company Number: TPA2010A03896

PATIENT
  Age: 66 Year
  Sex: Male

DRUGS (3)
  1. PIOGLITAZONE HCL [Suspect]
     Indication: DIABETES MELLITUS
     Dosage: 30 MG, ORAL
     Route: 048
     Dates: start: 20091217
  2. GLIMEPRIDE TABLET (GLIMEPRIDE) (TABLETS) [Concomitant]
  3. METFORMIN HYDROCHLORIDE TABLET (METFORMIN HYDROCHLORIDE) (TABLETS) [Suspect]
     Indication: DIABETES MELLITUS

REACTIONS (3)
  - GOITRE [None]
  - INFARCTION [None]
  - THYROID ADENOMA [None]
